FAERS Safety Report 4443069-0 (Version None)
Quarter: 2004Q3

REPORT INFORMATION
  Report Type: 
  Country: None (occurrence: None)
  Receive Date: 20040903
  Receipt Date: 20040628
  Transmission Date: 20050211
  Serious: Yes (Other)
  Sender: FDA-Public Use
  Company Number: 2004UW13389

PATIENT
  Age: 40 Year
  Sex: Male
  Weight: 92.5338 kg

DRUGS (4)
  1. CRESTOR [Suspect]
     Indication: BLOOD CHOLESTEROL INCREASED
     Dosage: 10 MG QD PO
     Route: 048
     Dates: start: 20040301
  2. ATENOLOL [Concomitant]
  3. ELAVIL [Concomitant]
  4. LIPITOR [Concomitant]

REACTIONS (7)
  - ABDOMINAL PAIN [None]
  - CONSTIPATION [None]
  - DYSURIA [None]
  - GINGIVAL BLEEDING [None]
  - MYALGIA [None]
  - RASH [None]
  - RENAL DISORDER [None]
